FAERS Safety Report 5123038-8 (Version None)
Quarter: 2006Q4

REPORT INFORMATION
  Report Type: 
  Country: None (occurrence: None)
  Receive Date: 20061004
  Receipt Date: 20061004
  Transmission Date: 20070319
  Serious: Yes (Hospitalization)
  Sender: FDA-Public Use
  Company Number: None

PATIENT
  Age: 66 Year
  Sex: Male
  Weight: 77.8 kg

DRUGS (2)
  1. BORTEZOMIB 2.5 MG [Suspect]
     Indication: MULTIPLE MYELOMA
     Dosage: 2.5MG IV PUSH DAILY ON DAYS, 1, 4, 8 AND 11 EVERY 3 WEEKS
     Route: 042
     Dates: start: 20060508, end: 20060610
  2. THALIDOMIDE 100MG [Suspect]
     Indication: MULTIPLE MYELOMA
     Dosage: 100 MG PO DAILY
     Route: 048
     Dates: start: 20060501, end: 20060627

REACTIONS (7)
  - ACTIVITIES OF DAILY LIVING IMPAIRED [None]
  - CHEST PAIN [None]
  - DRUG INEFFECTIVE [None]
  - MOBILITY DECREASED [None]
  - NEUROPATHY PERIPHERAL [None]
  - PAIN [None]
  - PAIN IN EXTREMITY [None]
